FAERS Safety Report 13703710 (Version 1)
Quarter: 2017Q2

REPORT INFORMATION
  Report Type: Spontaneous
  Country: US (occurrence: US)
  Receive Date: 20170629
  Receipt Date: 20170629
  Transmission Date: 20170830
  Serious: No
  Sender: FDA-Public Use
  Company Number: US-AVEDRO-AVE-2017-0139-AE

PATIENT
  Age: 25 Year
  Sex: Male
  Weight: 72.64 kg

DRUGS (4)
  1. PHOTREXA VISCOUS [Suspect]
     Active Substance: RIBOFLAVIN 5^-PHOSPHATE SODIUM
     Indication: PRODUCT USED FOR UNKNOWN INDICATION
     Dosage: EVERY 2 MINUTES
     Route: 047
     Dates: start: 20170509, end: 20170509
  2. KXL SYSTEM [Suspect]
     Active Substance: DEVICE
     Indication: PRODUCT USED FOR UNKNOWN INDICATION
     Route: 047
     Dates: start: 20170509, end: 20170509
  3. UNSPECIFIED TEARS (PROPYLENE GLYCOL) [Suspect]
     Active Substance: PROPYLENE GLYCOL
     Indication: CORNEAL THICKENING
     Route: 047
     Dates: start: 20170509, end: 20170509
  4. ALCAINE [Concomitant]
     Active Substance: PROPARACAINE HYDROCHLORIDE
     Indication: ANAESTHESIA
     Dosage: DROPS
     Route: 047
     Dates: start: 20170509, end: 20170509

REACTIONS (4)
  - Corneal epithelium defect [Recovering/Resolving]
  - Keratitis [Unknown]
  - Product use issue [Unknown]
  - Corneal opacity [Recovering/Resolving]

NARRATIVE: CASE EVENT DATE: 20170509
